FAERS Safety Report 4365273-2 (Version None)
Quarter: 2004Q2

REPORT INFORMATION
  Report Type: 
  Country: None (occurrence: None)
  Receive Date: 20040521
  Receipt Date: 20040504
  Transmission Date: 20050107
  Serious: Yes (Hospitalization)
  Sender: FDA-Public Use
  Company Number: A01200402123

PATIENT
  Age: 55 Year
  Sex: Male

DRUGS (7)
  1. PLAVIX [Suspect]
     Indication: ANTICOAGULANT THERAPY
     Dosage: 75 MG QD ORAL
     Route: 048
     Dates: start: 20040401, end: 20040413
  2. ACETYLSALICYLIC ACID CARDIO (ACETYLSALICYLIC ACID) [Concomitant]
  3. COVERSYL (PERINDOPRIL) [Concomitant]
  4. ZOCOR [Concomitant]
  5. PANTOZOL (PANTOPRAZOLE SODIUM) [Concomitant]
  6. EMCOR DECO (BISOPROLOL FUMARATE) [Concomitant]
  7. TILDIEM XR (DILTIAZEM HYDROCHLORIDE) [Concomitant]

REACTIONS (7)
  - BLOOD LACTATE DEHYDROGENASE INCREASED [None]
  - C-REACTIVE PROTEIN INCREASED [None]
  - HEPATIC FUNCTION ABNORMAL [None]
  - LEUKOCYTOCLASTIC VASCULITIS [None]
  - NEUTROPHILIA [None]
  - PYREXIA [None]
  - RED BLOOD CELL SEDIMENTATION RATE INCREASED [None]
